FAERS Safety Report 5424846-6 (Version None)
Quarter: 2007Q3

REPORT INFORMATION
  Report Type: 
  Country: None (occurrence: None)
  Receive Date: 20070822
  Receipt Date: 20070807
  Transmission Date: 20080115
  Serious: No
  Sender: FDA-Public Use
  Company Number: 2007S1007322

PATIENT
  Age: 42 Year
  Sex: Male
  Weight: 70.3075 kg

DRUGS (6)
  1. PHENYTEK [Suspect]
     Indication: CONVULSION
     Dosage: 400 MG; AT BEDTIME; ORAL
     Route: 048
     Dates: start: 20050101
  2. PHENYTEK [Suspect]
     Indication: CONVULSION
     Dosage: 50 MG; AT BEDTIME; ORAL
     Route: 048
     Dates: start: 20050101
  3. DIPHENHYDRAMINE HCL [Concomitant]
  4. LEVOXYL [Concomitant]
  5. PROTONIX [Concomitant]
  6. CEPHALEXIN [Concomitant]

REACTIONS (4)
  - GRAND MAL CONVULSION [None]
  - INCORRECT DOSE ADMINISTERED [None]
  - TREATMENT NONCOMPLIANCE [None]
  - WRONG TECHNIQUE IN DRUG USAGE PROCESS [None]
